FAERS Safety Report 25031308 (Version 1)
Quarter: 2025Q1

REPORT INFORMATION
  Report Type: Spontaneous
  Country: US (occurrence: None)
  Receive Date: 20250228
  Receipt Date: 20250228
  Transmission Date: 20250408
  Serious: Yes (Hospitalization)
  Sender: FDA-CTU
  Company Number: None

PATIENT
  Age: 63 Year
  Sex: Female
  Weight: 74.9 kg

DRUGS (11)
  1. DIVALPROEX SODIUM [Suspect]
     Active Substance: DIVALPROEX SODIUM
     Indication: Schizoaffective disorder bipolar type
     Dosage: 500 MG DAILY ORAL
     Route: 048
     Dates: end: 20250224
  2. ACETAMINOPHEN [Concomitant]
     Active Substance: ACETAMINOPHEN
  3. BISACODYL [Concomitant]
     Active Substance: BISACODYL
  4. Cholecalceferol [Concomitant]
  5. LITHIUM CARBONATE [Concomitant]
     Active Substance: LITHIUM CARBONATE
  6. VITAMINS [Concomitant]
     Active Substance: VITAMINS
  7. OLANZAPINE [Concomitant]
     Active Substance: OLANZAPINE
  8. QUETIAPINE [Concomitant]
     Active Substance: QUETIAPINE
  9. POLYETHYLENE GLYCOL [Concomitant]
     Active Substance: POLYETHYLENE GLYCOL
  10. SENNOSIDES [Concomitant]
     Active Substance: SENNOSIDES
  11. PROPRANOLOL [Concomitant]
     Active Substance: PROPRANOLOL HYDROCHLORIDE

REACTIONS (9)
  - Hydrocephalus [None]
  - Peripheral swelling [None]
  - Gait disturbance [None]
  - Urinary incontinence [None]
  - Cerebral ventricle dilatation [None]
  - Thrombocytopenia [None]
  - Gait disturbance [None]
  - Cognitive disorder [None]
  - Contusion [None]

NARRATIVE: CASE EVENT DATE: 20250222
